FAERS Safety Report 9383686 (Version 1)
Quarter: 2013Q3

REPORT INFORMATION
  Report Type: Spontaneous
  Country: US (occurrence: US)
  Receive Date: 20130704
  Receipt Date: 20130704
  Transmission Date: 20140515
  Serious: No
  Sender: FDA-Public Use
  Company Number: US-009507513-1306USA012584

PATIENT
  Age: 73 Year
  Sex: Female

DRUGS (5)
  1. EMEND [Suspect]
     Indication: NAUSEA
     Dosage: UNK, TRIPACK 1 BOTTLE OF 3
     Route: 048
     Dates: start: 20130524
  2. EMEND [Suspect]
     Indication: VOMITING
  3. EMEND [Suspect]
     Indication: INSOMNIA
  4. TARCEVA [Concomitant]
     Indication: NON-SMALL CELL LUNG CANCER
     Dosage: 150 MG, QD
  5. [THERAPY UNSPECIFIED] [Concomitant]
     Dosage: UNK

REACTIONS (1)
  - Sedation [Recovered/Resolved]
